FAERS Safety Report 4996502-X (Version None)
Quarter: 2006Q2

REPORT INFORMATION
  Report Type: 
  Country: None (occurrence: None)
  Receive Date: 20060509
  Receipt Date: 20051213
  Transmission Date: 20061013
  Serious: Yes (Death)
  Sender: FDA-Public Use
  Company Number: PHMT2005CA00800

PATIENT
  Age: 58 Year
  Sex: Female
  Weight: 95.238 kg

DRUGS (8)
  1. CLOZARIL [Suspect]
     Indication: SCHIZOPHRENIA, PARANOID TYPE
     Dosage: 100 MG QAM, 200 MG QHS
     Route: 048
     Dates: start: 20020601, end: 20051117
  2. ELAVIL [Concomitant]
     Dosage: 10 MG, QHS
     Route: 048
  3. DALMANE [Concomitant]
     Route: 048
  4. ISOPTIN [Concomitant]
     Dosage: UNK, BID
     Route: 048
  5. SEREVENT [Concomitant]
  6. FLOVENT [Concomitant]
  7. LIPIDIL [Concomitant]
     Route: 048
  8. LECTOPAM TAB [Concomitant]

REACTIONS (2)
  - INFARCTION [None]
  - METABOLIC SYNDROME [None]
